FAERS Safety Report 15470221 (Version 1)
Quarter: 2018Q4

REPORT INFORMATION
  Report Type: Spontaneous
  Country: FR (occurrence: FR)
  Receive Date: 20181005
  Receipt Date: 20181005
  Transmission Date: 20190205
  Serious: Yes (Hospitalization)
  Sender: FDA-Public Use
  Company Number: FR-ELI_LILLY_AND_COMPANY-FR201810001227

PATIENT
  Age: 78 Year
  Sex: Male
  Weight: 65 kg

DRUGS (2)
  1. GEMZAR [Suspect]
     Active Substance: GEMCITABINE HYDROCHLORIDE
     Indication: LYMPHOMA
     Dosage: 1720 MG, UNKNOWN
     Route: 042
     Dates: start: 20180531, end: 20180816
  2. ABRAXANE [Suspect]
     Active Substance: PACLITAXEL
     Indication: LYMPHOMA
     Dosage: 175 MG, UNKNOWN
     Route: 042
     Dates: start: 20180531, end: 20180816

REACTIONS (2)
  - Lung infection [Recovering/Resolving]
  - Pneumocystis jirovecii infection [Recovering/Resolving]

NARRATIVE: CASE EVENT DATE: 201808
